FAERS Safety Report 14172956 (Version 1)
Quarter: 2017Q4

REPORT INFORMATION
  Report Type: Spontaneous
  Country: US (occurrence: None)
  Receive Date: 20171108
  Receipt Date: 20171108
  Transmission Date: 20180321
  Serious: Yes (Other)
  Sender: FDA-Public Use
  Company Number: None

PATIENT
  Age: 45 Year
  Sex: Female

DRUGS (1)
  1. ZEPATIER [Suspect]
     Active Substance: ELBASVIR\GRAZOPREVIR
     Route: 048
     Dates: start: 20170714, end: 20171001

REACTIONS (4)
  - Nausea [None]
  - Dizziness [None]
  - Fluid retention [None]
  - Headache [None]

NARRATIVE: CASE EVENT DATE: 20171010
